FAERS Safety Report 22389334 (Version 1)
Quarter: 2023Q2

REPORT INFORMATION
  Report Type: Spontaneous
  Country: US (occurrence: US)
  Receive Date: 20230531
  Receipt Date: 20230531
  Transmission Date: 20230721
  Serious: Yes (Other)
  Sender: FDA-Public Use
  Company Number: US-TARO PHARMACEUTICALS USA INC.-2023TAR00573

PATIENT

DRUGS (3)
  1. MUPIROCIN [Suspect]
     Active Substance: MUPIROCIN
     Indication: Rash macular
     Dosage: UNK, BID,ENOUGH TO COVER THE ^HOLE^ IN MY LEG ABOUT A QUARTER SIZE ON A PIECE OF GAUZE, TO LEFT LEG
     Route: 061
     Dates: start: 2023, end: 20230516
  2. MUPIROCIN [Suspect]
     Active Substance: MUPIROCIN
     Dosage: UNK, OD, ENOUGH TO COVER THE ^HOLE^ IN MY LEG ABOUT A QUARTER SIZE ON A PIECE OF GAUZE, TO LEFT LEG
     Route: 061
  3. VITAMINS [Concomitant]
     Active Substance: VITAMINS
     Indication: Product used for unknown indication
     Dosage: UNK
     Route: 065

REACTIONS (6)
  - Haematochezia [Unknown]
  - Application site pruritus [Not Recovered/Not Resolved]
  - Skin discolouration [Not Recovered/Not Resolved]
  - Constipation [Unknown]
  - Therapy partial responder [Unknown]
  - Product use in unapproved indication [Unknown]

NARRATIVE: CASE EVENT DATE: 20230516
